FAERS Safety Report 25199823 (Version 1)
Quarter: 2025Q2

REPORT INFORMATION
  Report Type: Spontaneous
  Country: US (occurrence: US)
  Receive Date: 20250415
  Receipt Date: 20250415
  Transmission Date: 20250716
  Serious: No
  Sender: FENNEC PHARMACEUTICALS
  Company Number: US-FENNEC PHARMACEUTICALS, INC.-2025FEN00018

PATIENT
  Age: 26 Year
  Sex: Male

DRUGS (3)
  1. PEDMARK [Suspect]
     Active Substance: SODIUM THIOSULFATE
     Dosage: 48 G, 1X/WEEK
     Route: 042
  2. ONDANSETRON [Concomitant]
     Active Substance: ONDANSETRON
  3. METOCLOPRAMIDE [Concomitant]
     Active Substance: METOCLOPRAMIDE

REACTIONS (8)
  - Cough [Recovering/Resolving]
  - Dysphonia [Recovering/Resolving]
  - Dry throat [Unknown]
  - Sensation of foreign body [Unknown]
  - Heart rate increased [Unknown]
  - Anxiety [Unknown]
  - Blood pressure increased [Unknown]
  - Off label use [Unknown]

NARRATIVE: CASE EVENT DATE: 20250127
